FAERS Safety Report 7952274-8 (Version None)
Quarter: 2011Q4

REPORT INFORMATION
  Report Type: 
  Country: None (occurrence: None)
  Receive Date: 20111129
  Receipt Date: 20111124
  Transmission Date: 20120403
  Serious: Yes (Other)
  Sender: FDA-Public Use
  Company Number: AUR-APL-2011-05799

PATIENT
  Age: 22 Year
  Sex: Male
  Weight: 87 kg

DRUGS (4)
  1. METHADONE HCL [Suspect]
     Indication: PRODUCT USED FOR UNKNOWN INDICATION
     Dosage: 20 MG (20 MG, 1 IN 1 D), ORAL
     Route: 048
     Dates: start: 20110908
  2. ZOPICLONE [Concomitant]
  3. MIRTAZAPINE [Suspect]
     Indication: DEPRESSION
     Dosage: 15 MG (15 MG, 1 IN 1 D), ORAL
     Route: 048
     Dates: start: 20110324
  4. PREGABALIN [Suspect]
     Indication: PRODUCT USED FOR UNKNOWN INDICATION
     Dosage: (300 MG), ORAL
     Route: 048
     Dates: start: 20111028, end: 20111028

REACTIONS (8)
  - OCULOGYRIC CRISIS [None]
  - GRAND MAL CONVULSION [None]
  - DYSKINESIA [None]
  - SELF-MEDICATION [None]
  - CONVULSION [None]
  - DYSTONIA [None]
  - POSTICTAL STATE [None]
  - OFF LABEL USE [None]
